FAERS Safety Report 23327472 (Version 2)
Quarter: 2024Q1

REPORT INFORMATION
  Report Type: Spontaneous
  Country: ES (occurrence: ES)
  Receive Date: 20231221
  Receipt Date: 20240229
  Transmission Date: 20240410
  Serious: Yes (Life-Threatening)
  Sender: FDA-Public Use
  Company Number: ES-SUN PHARMACEUTICAL INDUSTRIES LTD-2023RR-424028

PATIENT
  Age: 58 Year
  Sex: Female

DRUGS (3)
  1. ERTAPENEM [Suspect]
     Active Substance: ERTAPENEM
     Indication: Product used for unknown indication
     Dosage: UNK
     Route: 040
     Dates: start: 20230505, end: 20230505
  2. MEROPENEM [Suspect]
     Active Substance: MEROPENEM
     Indication: Biliary tract infection
     Dosage: UNK
     Route: 040
     Dates: start: 20230504, end: 20230505
  3. CALCIUM AMIDOTRIZOATE\DIATRIZOATE MEGLUMINE\DIATRIZOATE SODIUM [Suspect]
     Active Substance: CALCIUM AMIDOTRIZOATE\DIATRIZOATE MEGLUMINE\DIATRIZOATE SODIUM
     Indication: Cholangiogram
     Dosage: UNK
     Route: 040
     Dates: start: 20230505, end: 20230505

REACTIONS (3)
  - Dyspnoea [Recovered/Resolved]
  - Anaphylactic reaction [Recovered/Resolved]
  - Oropharyngeal oedema [Recovered/Resolved]

NARRATIVE: CASE EVENT DATE: 20230505
